FAERS Safety Report 6542516-8 (Version None)
Quarter: 2010Q1

REPORT INFORMATION
  Report Type: 
  Country: None (occurrence: None)
  Receive Date: 20100119
  Receipt Date: 20100105
  Transmission Date: 20100710
  Serious: Yes (Life-Threatening)
  Sender: FDA-Public Use
  Company Number: GB-MYLANLABS-2010S1000116

PATIENT
  Age: 86 Year
  Sex: Male

DRUGS (5)
  1. WARFARIN [Suspect]
     Indication: DRUG USE FOR UNKNOWN INDICATION
     Route: 048
     Dates: start: 20041201, end: 20091109
  2. ATENOLOL [Concomitant]
     Indication: DRUG USE FOR UNKNOWN INDICATION
  3. ATORVASTATIN [Concomitant]
     Indication: DRUG USE FOR UNKNOWN INDICATION
  4. LATANOPROST [Concomitant]
     Indication: DRUG USE FOR UNKNOWN INDICATION
  5. RAMIPRIL [Concomitant]
     Indication: DRUG USE FOR UNKNOWN INDICATION

REACTIONS (4)
  - HAEMORRHAGE INTRACRANIAL [None]
  - HEADACHE [None]
  - MOBILITY DECREASED [None]
  - SOMNOLENCE [None]
